FAERS Safety Report 5603301-4 (Version None)
Quarter: 2008Q1

REPORT INFORMATION
  Report Type: 
  Country: None (occurrence: None)
  Receive Date: 20080123
  Receipt Date: 20080109
  Transmission Date: 20080703
  Serious: Yes (Hospitalization)
  Sender: FDA-Public Use
  Company Number: 2008SP000469

PATIENT
  Age: 43 Year
  Sex: Female

DRUGS (4)
  1. TEMODAL [Suspect]
     Indication: GLIOBLASTOMA MULTIFORME
     Dosage: 340 MG;, 340 MG;
     Dates: start: 20071119, end: 20071123
  2. TEMODAL [Suspect]
     Indication: GLIOBLASTOMA MULTIFORME
     Dosage: 340 MG;, 340 MG;
     Dates: start: 20071222, end: 20071226
  3. TEMODAL [Suspect]
     Indication: GLIOBLASTOMA MULTIFORME
     Dosage: 340 MG;, 340 MG;
     Dates: start: 20070601
  4. LEVETIRACETAM [Concomitant]

REACTIONS (5)
  - FALL [None]
  - HEMIPARESIS [None]
  - ISCHAEMIC CEREBRAL INFARCTION [None]
  - NEOPLASM PROGRESSION [None]
  - NO THERAPEUTIC RESPONSE [None]
